FAERS Safety Report 7787297-5 (Version None)
Quarter: 2011Q3

REPORT INFORMATION
  Report Type: 
  Country: None (occurrence: None)
  Receive Date: 20110929
  Receipt Date: 20110920
  Transmission Date: 20111222
  Serious: Yes (Other)
  Sender: FDA-Public Use
  Company Number: PHHY2011DK58065

PATIENT
  Sex: Male
  Weight: 76 kg

DRUGS (5)
  1. REMICADE [Suspect]
     Dosage: 3 MG, UNK
     Dates: start: 20080404
  2. REMICADE [Suspect]
     Indication: RHEUMATOID ARTHRITIS
     Dosage: 200 MG, UNK
     Dates: start: 20080404
  3. PREDNISOLONE [Suspect]
     Indication: INFLAMMATION
  4. METHOTREXATE [Suspect]
     Indication: RHEUMATOID ARTHRITIS
     Dosage: 10 MG, DAILY
     Route: 048
     Dates: start: 20010808, end: 20100827
  5. PINEX [Concomitant]
     Indication: PAIN
     Dosage: 2 G, UNK

REACTIONS (2)
  - SQUAMOUS CELL CARCINOMA [None]
  - CARCINOMA IN SITU OF SKIN [None]
